FAERS Safety Report 9061792 (Version 1)
Quarter: 2013Q1

REPORT INFORMATION
  Report Type: Spontaneous
  Country: US (occurrence: None)
  Receive Date: 20130122
  Receipt Date: 20130122
  Transmission Date: 20140127
  Serious: Yes (Death)
  Sender: FDA-Public Use
  Company Number: AUR-APL-2013-00505

PATIENT
  Age: 44 Year
  Sex: Female

DRUGS (7)
  1. PAROXETINE (PAROXETINE) [Suspect]
     Indication: PRODUCT USED FOR UNKNOWN INDICATION
  2. LAMOTRIGINE (LAMOTRIGINE) [Suspect]
  3. ONDANSETRON [Suspect]
  4. TRAMADOL (TRAMADOL) [Suspect]
  5. DIFLUNISAL [Suspect]
  6. CLONAZEPAM (CLONAZEPAM) (CLONAZEPAM) [Suspect]
  7. ETHANOL (ETHANOL) (UNKNOWN) (ETHANOL) [Suspect]

REACTIONS (4)
  - Respiratory arrest [None]
  - Cardiac arrest [None]
  - Toxicity to various agents [None]
  - Completed suicide [None]
